FAERS Safety Report 12928474 (Version 1)
Quarter: 2016Q4

REPORT INFORMATION
  Report Type: Spontaneous
  Country: GB (occurrence: GB)
  Receive Date: 20161110
  Receipt Date: 20161110
  Transmission Date: 20170207
  Serious: Yes (Disabling, Other)
  Sender: FDA-Public Use
  Company Number: GB-AUROBINDO-AUR-APL-2016-13563

PATIENT
  Age: 14 Year
  Sex: Male
  Weight: 38.1 kg

DRUGS (2)
  1. ARIPIPRAZOLE. [Concomitant]
     Active Substance: ARIPIPRAZOLE
     Indication: PRODUCT USED FOR UNKNOWN INDICATION
     Dosage: 2 ML, UNK
     Route: 065
  2. SERTRALINE [Suspect]
     Active Substance: SERTRALINE HYDROCHLORIDE
     Indication: ANXIETY
     Dosage: 100 MG, UNK
     Route: 048
     Dates: start: 20161007, end: 20161012

REACTIONS (10)
  - Tearfulness [Recovered/Resolved]
  - Social avoidant behaviour [Recovered/Resolved]
  - Product substitution issue [Unknown]
  - Anxiety [Recovered/Resolved]
  - Obsessive-compulsive disorder [Recovered/Resolved]
  - Condition aggravated [Recovered/Resolved]
  - Decreased interest [Recovered/Resolved]
  - Stress [Recovered/Resolved]
  - Wrong technique in product usage process [Unknown]
  - Intentional self-injury [Recovered/Resolved]

NARRATIVE: CASE EVENT DATE: 20161007
